APPROVED DRUG PRODUCT: PFIZERPEN
Active Ingredient: PENICILLIN G POTASSIUM
Strength: 5,000,000 UNITS/VIAL
Dosage Form/Route: INJECTABLE;INJECTION
Application: A060657 | Product #002 | TE Code: AP
Applicant: PFIZER LABORATORIES DIV PFIZER INC
Approved: Approved Prior to Jan 1, 1982 | RLD: No | RS: Yes | Type: RX